FAERS Safety Report 17802603 (Version 1)
Quarter: 2020Q2

REPORT INFORMATION
  Report Type: Spontaneous
  Country: TW (occurrence: TW)
  Receive Date: 20200519
  Receipt Date: 20200519
  Transmission Date: 20200714
  Serious: Yes (Hospitalization)
  Sender: FDA-Public Use
  Company Number: TW-UNICHEM PHARMACEUTICALS (USA) INC-UCM202005-000608

PATIENT
  Age: 27 Year
  Sex: Female

DRUGS (6)
  1. CLONAZEPAM. [Suspect]
     Active Substance: CLONAZEPAM
     Indication: SUICIDE ATTEMPT
     Dosage: UNKNOWN
  2. QUETIAPINE. [Suspect]
     Active Substance: QUETIAPINE
     Indication: SUICIDE ATTEMPT
     Dosage: UNKNOWN
  3. FLURAZEPAM [Suspect]
     Active Substance: FLURAZEPAM HYDROCHLORIDE
     Indication: SUICIDE ATTEMPT
     Dosage: UNKNOWN
  4. FLUNITRAZEPAM [Suspect]
     Active Substance: FLUNITRAZEPAM
     Indication: SUICIDE ATTEMPT
     Dosage: UNKNOWN
  5. PROPRANOLOL [Suspect]
     Active Substance: PROPRANOLOL HYDROCHLORIDE
     Indication: SUICIDE ATTEMPT
     Dosage: UNKNOWN
  6. FLUPENTIXOL [Suspect]
     Active Substance: FLUPENTIXOL
     Indication: SUICIDE ATTEMPT
     Dosage: UNKNOWN

REACTIONS (9)
  - Benzodiazepine drug level increased [Unknown]
  - Overdose [Unknown]
  - Suicide attempt [Unknown]
  - Blood creatinine increased [Unknown]
  - Altered state of consciousness [Unknown]
  - Cerebrovascular accident [Unknown]
  - Cerebral infarction [Unknown]
  - Somnolence [Unknown]
  - Leukocytosis [Unknown]
